FAERS Safety Report 9054660 (Version 1)
Quarter: 2013Q1

REPORT INFORMATION
  Report Type: Report from Study
  Country: CA (occurrence: CA)
  Receive Date: 20130208
  Receipt Date: 20130208
  Transmission Date: 20140127
  Serious: Yes (Other)
  Sender: FDA-Public Use
  Company Number: CA-JNJFOC-20130117183

PATIENT
  Age: 25 None
  Sex: Female
  Weight: 68 kg

DRUGS (1)
  1. REMICADE [Suspect]
     Indication: CROHN^S DISEASE
     Route: 042
     Dates: start: 2009

REACTIONS (4)
  - Haematochezia [Not Recovered/Not Resolved]
  - Blood count abnormal [Unknown]
  - Muscle spasms [Unknown]
  - Diarrhoea [Unknown]
